FAERS Safety Report 6067527-0 (Version None)
Quarter: 2009Q1

REPORT INFORMATION
  Report Type: 
  Country: None (occurrence: None)
  Receive Date: 20090205
  Receipt Date: 20081126
  Transmission Date: 20090719
  Serious: Yes (Other)
  Sender: FDA-Public Use
  Company Number: JP-SANOFI-SYNTHELABO-A01200901013

PATIENT
  Age: 63 Year
  Sex: Male

DRUGS (4)
  1. FLUOROURACIL [Concomitant]
     Dosage: UNK
     Route: 042
  2. LEUCOVORIN CALCIUM [Concomitant]
     Dosage: UNK
     Route: 041
  3. CAMPTO FOR IV INFUSION [Suspect]
     Dosage: UNK
     Route: 041
  4. ELPLAT [Suspect]
     Indication: COLON CANCER
     Dosage: UNK
     Route: 041

REACTIONS (1)
  - ILLUSION [None]
